FAERS Safety Report 8157566-8 (Version None)
Quarter: 2012Q1

REPORT INFORMATION
  Report Type: 
  Country: None (occurrence: None)
  Receive Date: 20120222
  Receipt Date: 20111122
  Transmission Date: 20120608
  Serious: No
  Sender: FDA-Public Use
  Company Number: US-ASTRAZENECA-2011SE71312

PATIENT
  Age: 61 Year
  Sex: Female

DRUGS (3)
  1. FELODIPINE [Suspect]
     Indication: BLOOD PRESSURE INCREASED
     Route: 048
     Dates: start: 20111115, end: 20111115
  2. BENAZEPRIL HYDROCHLORIDE [Concomitant]
  3. ATENOLOL [Suspect]
     Route: 048

REACTIONS (8)
  - BACK PAIN [None]
  - MUSCULOSKELETAL PAIN [None]
  - FLUSHING [None]
  - DRUG INEFFECTIVE [None]
  - BLOOD PRESSURE INCREASED [None]
  - ABNORMAL SENSATION IN EYE [None]
  - IRRITABILITY [None]
  - POLLAKIURIA [None]
